FAERS Safety Report 23419457 (Version 1)
Quarter: 2024Q1

REPORT INFORMATION
  Report Type: Other
  Country: CA (occurrence: CA)
  Receive Date: 20240118
  Receipt Date: 20240118
  Transmission Date: 20240409
  Serious: Yes (Hospitalization)
  Sender: FDA-Public Use
  Company Number: CA-BIOCON-BBL2023001330

PATIENT
  Age: 81 Year
  Sex: Male

DRUGS (1)
  1. HULIO [Suspect]
     Active Substance: ADALIMUMAB-FKJP
     Indication: Crohn^s disease
     Dosage: 40 MG
     Route: 058

REACTIONS (3)
  - Cardiac disorder [Unknown]
  - Asthenia [Unknown]
  - Dyspnoea [Unknown]
